FAERS Safety Report 6986537-X (Version None)
Quarter: 2010Q3

REPORT INFORMATION
  Report Type: 
  Country: None (occurrence: None)
  Receive Date: 20100915
  Receipt Date: 20090702
  Transmission Date: 20110219
  Serious: No
  Sender: FDA-Public Use
  Company Number: US-WYE-H10043709

PATIENT
  Sex: Female

DRUGS (10)
  1. PRISTIQ [Suspect]
     Indication: DEPRESSION
     Route: 048
     Dates: start: 20090611
  2. ACTOS [Concomitant]
  3. GLIPIZIDE [Concomitant]
  4. BENTYL [Concomitant]
  5. FUROSEMIDE [Concomitant]
  6. POTASSIUM [Concomitant]
  7. TRAMADOL [Concomitant]
  8. LEVOTHYROXINE SODIUM [Concomitant]
  9. ZOCOR [Concomitant]
  10. ESTRADIOL [Concomitant]

REACTIONS (1)
  - HEADACHE [None]
